FAERS Safety Report 21481507 (Version 1)
Quarter: 2022Q4

REPORT INFORMATION
  Report Type: Spontaneous
  Country: FR (occurrence: FR)
  Receive Date: 20221020
  Receipt Date: 20221020
  Transmission Date: 20230113
  Serious: Yes (Other)
  Sender: FDA-Public Use
  Company Number: FR-SUN PHARMACEUTICAL INDUSTRIES LTD-2022RR-359961

PATIENT
  Age: 67 Year
  Sex: Female
  Weight: 60 kg

DRUGS (6)
  1. ACETAMINOPHEN [Suspect]
     Active Substance: ACETAMINOPHEN
     Indication: Pain
     Dosage: 4 GRAM, DAILY
     Route: 048
     Dates: start: 20220622, end: 20220703
  2. TRAMADOL HYDROCHLORIDE [Suspect]
     Active Substance: TRAMADOL HYDROCHLORIDE
     Indication: Pain
     Dosage: 200 MILLIGRAM, DAILY
     Route: 048
     Dates: start: 20220622, end: 20220629
  3. DEXAMETHASONE [Suspect]
     Active Substance: DEXAMETHASONE
     Indication: Meningitis
     Dosage: 40 MILLIGRAM, 4X/D
     Route: 040
     Dates: start: 20220701, end: 20220704
  4. AUGMENTIN [Suspect]
     Active Substance: AMOXICILLIN\CLAVULANATE POTASSIUM
     Indication: Antibiotic prophylaxis
     Dosage: 4 GRAM, DAILY
     Route: 048
     Dates: start: 20220621, end: 20220629
  5. KETOPROFEN [Suspect]
     Active Substance: KETOPROFEN
     Indication: Pain
     Dosage: 200 MILLIGRAM, DAILY
     Route: 048
     Dates: start: 20220622, end: 20220629
  6. CEFOTAXIME [Suspect]
     Active Substance: CEFOTAXIME SODIUM
     Indication: Meningitis
     Dosage: 16 GRAM/D
     Route: 040
     Dates: start: 20220701, end: 20220705

REACTIONS (2)
  - Cholestasis [Not Recovered/Not Resolved]
  - Condition aggravated [Not Recovered/Not Resolved]

NARRATIVE: CASE EVENT DATE: 20220628
